FAERS Safety Report 20346530 (Version 1)
Quarter: 2022Q1

REPORT INFORMATION
  Report Type: Spontaneous
  Country: US (occurrence: None)
  Receive Date: 20220117
  Receipt Date: 20220117
  Transmission Date: 20220423
  Serious: Yes (Hospitalization)
  Sender: FDA-Public Use
  Company Number: None

PATIENT
  Age: 81 Year
  Sex: Male

DRUGS (1)
  1. ESBRIET [Suspect]
     Active Substance: PIRFENIDONE
     Indication: Essential hypertension
     Dosage: FREQUENCY : 3 TIMES A DAY;?
     Route: 048
     Dates: start: 20200124

REACTIONS (4)
  - Idiopathic pulmonary fibrosis [None]
  - Thrombosis [None]
  - Pneumonia [None]
  - Heart rate irregular [None]

NARRATIVE: CASE EVENT DATE: 20220116
